FAERS Safety Report 6042177-0 (Version None)
Quarter: 2009Q1

REPORT INFORMATION
  Report Type: 
  Country: None (occurrence: None)
  Receive Date: 20090116
  Receipt Date: 20090107
  Transmission Date: 20090719
  Serious: Yes (Other)
  Sender: FDA-Public Use
  Company Number: PHEH2009US00606

PATIENT
  Sex: Male

DRUGS (8)
  1. ZOMETA [Suspect]
     Indication: LUNG CANCER METASTATIC
     Dosage: 4 MG MONTHLY
     Route: 042
     Dates: start: 20050101, end: 20070601
  2. RADIATION [Concomitant]
  3. COUMADIN [Concomitant]
  4. FLECAINIDE ACETATE [Concomitant]
  5. FLOMAX [Concomitant]
  6. TARCEVA [Concomitant]
  7. DETROL [Concomitant]
  8. CARBOPLATIN [Concomitant]

REACTIONS (3)
  - BONE DISORDER [None]
  - IMPAIRED HEALING [None]
  - TOOTH EXTRACTION [None]
